FAERS Safety Report 4449637-4 (Version None)
Quarter: 2004Q3

REPORT INFORMATION
  Report Type: 
  Country: None (occurrence: None)
  Receive Date: 20040913
  Receipt Date: 20040913
  Transmission Date: 20050211
  Serious: Yes (Other)
  Sender: FDA-Public Use
  Company Number: None

PATIENT
  Age: 46 Year
  Sex: Female
  Weight: 39.9165 kg

DRUGS (4)
  1. KARIVA [Suspect]
     Indication: CONTRACEPTION
     Dosage: ONE PO QD
     Route: 048
  2. KARIVA [Suspect]
     Indication: MIGRAINE
     Dosage: ONE PO QD
     Route: 048
  3. IMITREX [Concomitant]
  4. ALBUTEROL [Concomitant]

REACTIONS (3)
  - ABDOMINAL PAIN [None]
  - DIZZINESS [None]
  - THROAT TIGHTNESS [None]
